FAERS Safety Report 15331903 (Version 3)
Quarter: 2019Q4

REPORT INFORMATION
  Report Type: Spontaneous
  Country: SI (occurrence: SI)
  Receive Date: 20180829
  Receipt Date: 20191227
  Transmission Date: 20200122
  Serious: Yes (Hospitalization)
  Sender: FDA-Public Use
  Company Number: SI-VALIDUS PHARMACEUTICALS LLC-SI-2018VAL000889

PATIENT

DRUGS (28)
  1. COUPET [Suspect]
     Active Substance: ROSUVASTATIN CALCIUM
     Indication: PRODUCT USED FOR UNKNOWN INDICATION
     Dosage: IN THE EVENING (20 MG, 1 IN 1 D)
     Route: 065
  2. ENTRESTO [Suspect]
     Active Substance: SACUBITRIL\VALSARTAN
     Dosage: 97/103 MG (200 MG, 1 IN 12 HR)
     Route: 065
  3. FUROSEMIDE. [Suspect]
     Active Substance: FUROSEMIDE
     Indication: PRODUCT USED FOR UNKNOWN INDICATION
     Dosage: 125 MG PLUS 40 MG IN THE AFTERNOON (165 MG, 1 IN 1 D)
     Route: 065
  4. AMLOPIN                            /00972401/ [Suspect]
     Active Substance: AMLODIPINE BESYLATE
     Dosage: 2X5 MG (10 MG)
     Route: 065
  5. AMLOPIN                            /00972401/ [Suspect]
     Active Substance: AMLODIPINE BESYLATE
     Dosage: IN THE EVENING (5 MG, 1 IN 1 D)
     Route: 065
  6. NEPHROTRANS [Suspect]
     Active Substance: SODIUM BICARBONATE
     Indication: PRODUCT USED FOR UNKNOWN INDICATION
     Dosage: 1000 MG, 1 IN 12 HR
     Route: 065
  7. AMLOPIN                            /00972401/ [Suspect]
     Active Substance: AMLODIPINE BESYLATE
     Dosage: IN THE MORNING (10 MG, 1 IN 1 D)
     Route: 065
  8. PRENESSA [Suspect]
     Active Substance: PERINDOPRIL
     Indication: PRODUCT USED FOR UNKNOWN INDICATION
     Dosage: IN THE MORNING (4 MG, 1 IN 1 D)
     Route: 065
  9. VENTOLIN [Suspect]
     Active Substance: ALBUTEROL SULFATE
     Indication: PRODUCT USED FOR UNKNOWN INDICATION
     Dosage: 2 BREATH-INS WHEN NEEDED
     Route: 065
  10. MAREVAN [Suspect]
     Active Substance: WARFARIN SODIUM
     Indication: PRODUCT USED FOR UNKNOWN INDICATION
     Dosage: ACCORDING TO SCHEME
     Route: 065
  11. ENTRESTO [Suspect]
     Active Substance: SACUBITRIL\VALSARTAN
     Indication: PRODUCT USED FOR UNKNOWN INDICATION
     Dosage: 49/51 MG (100 MG, 1 IN 12 HR)
     Route: 065
  12. ENTRESTO [Suspect]
     Active Substance: SACUBITRIL\VALSARTAN
     Dosage: 49/51 MG (100 MG, 1 IN 12 HR)
     Route: 065
  13. AMLOPIN                            /00972401/ [Suspect]
     Active Substance: AMLODIPINE BESYLATE
     Indication: PRODUCT USED FOR UNKNOWN INDICATION
     Dosage: IN THE EVENING (10 MG, 1 IN 1 D)
     Route: 065
  14. PLIVIT D3 [Suspect]
     Active Substance: CHOLECALCIFEROL
     Indication: PRODUCT USED FOR UNKNOWN INDICATION
     Dosage: 10 DRP, QD
     Route: 065
  15. CONCOR [Suspect]
     Active Substance: BISOPROLOL FUMARATE
     Indication: PRODUCT USED FOR UNKNOWN INDICATION
     Dosage: IN THE MORNING (10 MG, 1 IN 1 D)
     Route: 065
  16. FUROSEMIDE. [Suspect]
     Active Substance: FUROSEMIDE
     Dosage: (125 MG IN THE MORNING PLUS 40 MG) IN CASE OF SWELLING (165 MG, 1 IN 1 D)
     Route: 065
  17. PRENESSA [Suspect]
     Active Substance: PERINDOPRIL
     Dosage: IN THE MORNING (8 MG, 1 IN 1 D)
     Route: 065
  18. MIRCERA [Suspect]
     Active Substance: METHOXY POLYETHYLENE GLYCOL-EPOETIN BETA
     Indication: PRODUCT USED FOR UNKNOWN INDICATION
     Dosage: 50 ?G, 1 IN 14 D
     Route: 065
  19. RENVELA [Suspect]
     Active Substance: SEVELAMER CARBONATE
     Indication: PRODUCT USED FOR UNKNOWN INDICATION
     Dosage: 1600 MG, 1 IN 8 HR
     Route: 065
  20. INSULIN [Concomitant]
     Active Substance: INSULIN NOS
     Indication: PRODUCT USED FOR UNKNOWN INDICATION
     Dosage: UNK
  21. ROCALTROL [Suspect]
     Active Substance: CALCITRIOL
     Indication: PRODUCT USED FOR UNKNOWN INDICATION
     Dosage: 0.25 ?G
     Route: 048
  22. FUROSEMIDE. [Suspect]
     Active Substance: FUROSEMIDE
     Dosage: (500 PLUS 250 MG IN THE MORNING) (750 MG, 1 IN 1 D)
     Route: 065
  23. MAREVAN [Suspect]
     Active Substance: WARFARIN SODIUM
     Dosage: (2X1 TBL, OTHER DAYS 2 TBL) ACCORDING TO SCHEME (2 DF)
     Route: 065
  24. FUROSEMIDE. [Suspect]
     Active Substance: FUROSEMIDE
     Dosage: (125 MG IN THE MORNING PLUS 40 AT 4 PM) (165 MG, 1 IN 1 D)
     Route: 065
  25. TRAJENTA [Suspect]
     Active Substance: LINAGLIPTIN
     Indication: PRODUCT USED FOR UNKNOWN INDICATION
     Dosage: AT BP CHECKS (5 MG)
     Route: 065
  26. TRAJENTA [Suspect]
     Active Substance: LINAGLIPTIN
     Dosage: IN THE MORNING (5 MG, 1 IN 1 D)
     Route: 065
  27. MIRCERA [Suspect]
     Active Substance: METHOXY POLYETHYLENE GLYCOL-EPOETIN BETA
     Dosage: UNK
     Route: 065
     Dates: start: 20171111
  28. ASPIRIN PROTECT [Concomitant]
     Active Substance: ASPIRIN
     Indication: PRODUCT USED FOR UNKNOWN INDICATION
     Dosage: UNK

REACTIONS (47)
  - Blood urea increased [Unknown]
  - Dry skin [Unknown]
  - Blood pressure systolic decreased [Unknown]
  - Platelet count decreased [Unknown]
  - Pulmonary hypertension [Unknown]
  - Aortic valve incompetence [Unknown]
  - Hypervolaemia [Unknown]
  - Blood uric acid increased [Unknown]
  - Dyspnoea [Unknown]
  - Respiratory failure [Unknown]
  - Electrocardiogram T wave inversion [Unknown]
  - Right atrial enlargement [Unknown]
  - Acute pulmonary oedema [Recovered/Resolved]
  - Ventricular hyperkinesia [Unknown]
  - Blood phosphorus increased [Unknown]
  - Haemoglobin decreased [Unknown]
  - Electrocardiogram ST segment elevation [Unknown]
  - Blood iron decreased [Unknown]
  - Blood triglycerides increased [Unknown]
  - Left ventricular enlargement [Unknown]
  - Hypochromasia [Unknown]
  - Mean platelet volume increased [Unknown]
  - Mitral valve incompetence [Unknown]
  - High density lipoprotein decreased [Unknown]
  - Lymphocyte count decreased [Unknown]
  - Left ventricular dysfunction [Unknown]
  - Blood creatinine increased [Unknown]
  - Mitral valve thickening [Unknown]
  - Oedema [Unknown]
  - Left ventricular hypertrophy [Unknown]
  - Diastolic dysfunction [Unknown]
  - Serum ferritin increased [Unknown]
  - Hypertensive heart disease [Unknown]
  - Red cell distribution width increased [Unknown]
  - Anaemia [Unknown]
  - Cardiac failure [Unknown]
  - Haematocrit decreased [Unknown]
  - Tricuspid valve incompetence [Unknown]
  - Left atrial enlargement [Unknown]
  - Hypertension [Unknown]
  - C-reactive protein increased [Unknown]
  - Eosinophil count increased [Unknown]
  - Blood glucose increased [Unknown]
  - Red blood cell sedimentation rate increased [Unknown]
  - Red blood cell count decreased [Unknown]
  - Blood chloride increased [Unknown]
  - Pulmonary embolism [Unknown]

NARRATIVE: CASE EVENT DATE: 201706
